FAERS Safety Report 8984525 (Version 1)
Quarter: 2012Q4

REPORT INFORMATION
  Report Type: 
  Country: US (occurrence: US)
  Receive Date: 20121226
  Receipt Date: 20121226
  Transmission Date: 20130627
  Serious: Yes (Hospitalization)
  Sender: FDA-Public Use
  Company Number: US-009507513-2011SP051290

PATIENT

DRUGS (1)
  1. NUVARING [Suspect]
     Indication: POLYCYSTIC OVARIES
     Dates: start: 200502, end: 20050314

REACTIONS (7)
  - Hiatus hernia [Unknown]
  - Chest pain [Unknown]
  - Deep vein thrombosis [Recovering/Resolving]
  - Thrombosis [Unknown]
  - Diabetes mellitus [Unknown]
  - Asthma [Unknown]
  - Migraine [Unknown]
